FAERS Safety Report 10227009 (Version 1)
Quarter: 2014Q2

REPORT INFORMATION
  Report Type: Spontaneous
  Country: US (occurrence: None)
  Receive Date: 20140606
  Receipt Date: 20140606
  Transmission Date: 20141212
  Serious: Yes (Hospitalization, Other)
  Sender: FDA-Public Use
  Company Number: UTC-044666

PATIENT
  Age: 56 Year
  Sex: Female
  Weight: 72.6 kg

DRUGS (4)
  1. TYVASO (TREPROSTINIL SODIUM) INHALATION GAS, 0.6MG/ML [Suspect]
     Indication: COR PULMONALE CHRONIC
     Route: 055
     Dates: start: 20120813
  2. ADCIRCA (TADALAFIL) [Concomitant]
  3. TRACLEER (BOSENTAN) [Concomitant]
  4. LETAIRIS (AMBRISENTAN) [Concomitant]

REACTIONS (6)
  - Therapy cessation [None]
  - Ulcer [None]
  - Abdominal discomfort [None]
  - Walking distance test abnormal [None]
  - Nausea [None]
  - Gastric ulcer [None]
